FAERS Safety Report 9982469 (Version 1)
Quarter: 2014Q1

REPORT INFORMATION
  Report Type: Report from Study
  Country: FR (occurrence: FR)
  Receive Date: 20140307
  Receipt Date: 20140307
  Transmission Date: 20141002
  Serious: Yes (Hospitalization)
  Sender: FDA-Public Use
  Company Number: PHHY2014FR026989

PATIENT
  Age: 59 Year
  Sex: Male
  Weight: 70 kg

DRUGS (5)
  1. MYCOPHENOLIC ACID [Suspect]
     Indication: IMMUNOSUPPRESSION
     Dosage: 1440 MG, BID
     Route: 048
     Dates: start: 20130821
  2. NEORAL [Suspect]
     Indication: IMMUNOSUPPRESSION
     Dosage: 400 MG, QD
     Dates: start: 20130821
  3. CORTANCYL [Concomitant]
     Indication: IMMUNOSUPPRESSION
     Dosage: 80 MG, QD
     Dates: start: 20130821
  4. BACTRIM [Concomitant]
     Indication: PROPHYLAXIS
     Dates: start: 20130821
  5. VALGANCICLOVIR [Concomitant]
     Dates: start: 20130821

REACTIONS (5)
  - Lymphocele [Recovered/Resolved]
  - Urinoma [Recovered/Resolved]
  - Renal failure acute [Recovered/Resolved]
  - Oedema peripheral [Recovered/Resolved]
  - Lymphorrhoea [Recovered/Resolved]
